FAERS Safety Report 21036841 (Version 1)
Quarter: 2022Q3

REPORT INFORMATION
  Report Type: Spontaneous
  Country: ES (occurrence: ES)
  Receive Date: 20220702
  Receipt Date: 20220702
  Transmission Date: 20221027
  Serious: Yes (Hospitalization)
  Sender: FDA-Public Use
  Company Number: None

PATIENT
  Age: 87 Year
  Sex: Male

DRUGS (2)
  1. DAPTOMYCIN [Suspect]
     Active Substance: DAPTOMYCIN
     Indication: Bacteraemia
     Dosage: (7068A), 700 MG AT EVERY 24 HOURS
     Route: 042
     Dates: start: 20220422, end: 20220512
  2. CEFTAROLINE [Suspect]
     Active Substance: CEFTAROLINE
     Indication: Bacteraemia
     Dosage: STRENGTH: 600 MG
     Route: 042
     Dates: start: 20220427, end: 20220511

REACTIONS (1)
  - Pneumonitis [Recovering/Resolving]

NARRATIVE: CASE EVENT DATE: 20220512
